FAERS Safety Report 5800290-4 (Version None)
Quarter: 2008Q3

REPORT INFORMATION
  Report Type: 
  Country: None (occurrence: None)
  Receive Date: 20080702
  Receipt Date: 20080702
  Transmission Date: 20090109
  Serious: Yes (Death, Life-Threatening)
  Sender: FDA-Public Use
  Company Number: None

PATIENT
  Age: 66 Year
  Sex: Female
  Weight: 48.9885 kg

DRUGS (3)
  1. DIGITEK 0.25MG TAB MYLA [Suspect]
     Indication: ARRHYTHMIA
     Dosage: ONE TABLE EVERYDAY PO FILLED MONTHLY TILL DEATH
     Route: 048
     Dates: start: 20070423, end: 20071202
  2. DIGITEK 0.25MG TAB MYLA [Suspect]
     Indication: CARDIAC FAILURE CONGESTIVE
     Dosage: ONE TABLE EVERYDAY PO FILLED MONTHLY TILL DEATH
     Route: 048
     Dates: start: 20070423, end: 20071202
  3. LANOXIN [Suspect]

REACTIONS (3)
  - OVERDOSE [None]
  - PHARMACEUTICAL PRODUCT COMPLAINT [None]
  - SUDDEN DEATH [None]
